FAERS Safety Report 4619377-7 (Version None)
Quarter: 2005Q2

REPORT INFORMATION
  Report Type: 
  Country: None (occurrence: None)
  Receive Date: 20050325
  Receipt Date: 20010907
  Transmission Date: 20051028
  Serious: Yes (Hospitalization)
  Sender: FDA-Public Use
  Company Number: 64886-2002-047

PATIENT
  Age: 64 Year
  Sex: Male

DRUGS (3)
  1. FLUOROURACIL [Suspect]
     Indication: HYPOPHARYNGEAL CANCER
     Dosage: 1000 MG/M2 IV
     Route: 042
  2. FLUOROURACIL [Suspect]
     Indication: METASTASES TO LUNG
     Dosage: 1000 MG/M2 IV
     Route: 042
  3. CARBOPLATIN [Concomitant]

REACTIONS (1)
  - ANGINA PECTORIS [None]
